FAERS Safety Report 18663685 (Version 2)
Quarter: 2021Q1

REPORT INFORMATION
  Report Type: Spontaneous
  Country: US (occurrence: US)
  Receive Date: 20201224
  Receipt Date: 20210128
  Transmission Date: 20210419
  Serious: Yes (Other)
  Sender: FDA-Public Use
  Company Number: US-ARBOR PHARMACEUTICALS, LLC-US-2020ARB001211

PATIENT
  Age: 82 Year
  Sex: Female

DRUGS (2)
  1. LABETALOL [Concomitant]
     Active Substance: LABETALOL\LABETALOL HYDROCHLORIDE
     Indication: BLOOD PRESSURE MANAGEMENT
     Dosage: 200 MG ONCE IN THE MORNING AND ONCE AT 3 PM AND 300 MG ONCE DAILY AT BEDTIME
  2. EDARBI [Suspect]
     Active Substance: AZILSARTAN KAMEDOXOMIL
     Indication: BLOOD PRESSURE MANAGEMENT
     Dosage: 80 MG, QD
     Dates: start: 202012

REACTIONS (9)
  - Nasal dryness [None]
  - Nasal congestion [Unknown]
  - Rhinorrhoea [Unknown]
  - Expired product administered [Unknown]
  - Alopecia [Unknown]
  - Therapeutic product effect decreased [Unknown]
  - Blood pressure systolic increased [Unknown]
  - Sinus disorder [Unknown]
  - Blood pressure increased [Unknown]

NARRATIVE: CASE EVENT DATE: 202012
